FAERS Safety Report 6330424-7 (Version None)
Quarter: 2009Q3

REPORT INFORMATION
  Report Type: 
  Country: None (occurrence: None)
  Receive Date: 20090826
  Receipt Date: 20090826
  Transmission Date: 20100115
  Serious: Yes (Hospitalization)
  Sender: FDA-Public Use
  Company Number: None

PATIENT
  Sex: Female
  Weight: 69.9 kg

DRUGS (2)
  1. CYTARABINE [Suspect]
     Dosage: 14080 MG
  2. MITOXANTRONE HYDROCHLORIDE [Suspect]
     Dosage: 84 MG

REACTIONS (9)
  - ALPHA HAEMOLYTIC STREPTOCOCCAL INFECTION [None]
  - MENORRHAGIA [None]
  - MULTI-ORGAN FAILURE [None]
  - NAUSEA [None]
  - NEUTROPENIA [None]
  - PETECHIAE [None]
  - RESPIRATORY DISTRESS [None]
  - SEPTIC SHOCK [None]
  - VOMITING [None]
